FAERS Safety Report 16464854 (Version 5)
Quarter: 2024Q1

REPORT INFORMATION
  Report Type: Spontaneous
  Country: IT (occurrence: IT)
  Receive Date: 20190621
  Receipt Date: 20240314
  Transmission Date: 20240409
  Serious: Yes (Hospitalization, Other)
  Sender: FDA-Public Use
  Company Number: IT-ACRAF SPA-2019-017731

PATIENT
  Age: 32 Year
  Sex: Male
  Weight: 107 kg

DRUGS (10)
  1. IBUPROFEN [Suspect]
     Active Substance: IBUPROFEN
     Indication: Back pain
     Dosage: 600 MILLIGRAM, QD
     Route: 065
     Dates: start: 2014, end: 2015
  2. IBUPROFEN [Suspect]
     Active Substance: IBUPROFEN
     Indication: Pain in extremity
  3. STANOZOLOL [Suspect]
     Active Substance: STANOZOLOL
     Indication: Supplementation therapy
     Dosage: 2 MILLIGRAM/KILOGRAM, QD
     Route: 048
  4. STANOZOLOL [Suspect]
     Active Substance: STANOZOLOL
     Dosage: UNK UNK, QD
     Route: 048
  5. LEUPROLIDE ACETATE [Suspect]
     Active Substance: ISOPROPYL ALCOHOL\LEUPROLIDE ACETATE
     Indication: Supplementation therapy
     Dosage: 500 MILLIGRAM, QD
     Route: 048
  6. LEUPROLIDE ACETATE [Suspect]
     Active Substance: ISOPROPYL ALCOHOL\LEUPROLIDE ACETATE
     Indication: Supplementation therapy
     Dosage: UNK
     Route: 065
  7. ENANTONE LP [Suspect]
     Active Substance: LEUPROLIDE ACETATE
     Indication: Supplementation therapy
     Dosage: UNK
     Route: 030
  8. CREATINE [Suspect]
     Active Substance: CREATINE
     Indication: Supplementation therapy
     Dosage: 7 DAYS/MONTH
     Route: 065
  9. MESTEROLONE [Concomitant]
     Active Substance: MESTEROLONE
     Indication: Libido decreased
     Dosage: UNK
     Route: 065
  10. TESTOSTERONE ENANTHATE/NORMA [Concomitant]
     Dosage: UNK
     Route: 030

REACTIONS (9)
  - Cardiomegaly [Recovering/Resolving]
  - End stage renal disease [Recovering/Resolving]
  - Ventricular hypokinesia [Recovering/Resolving]
  - Focal segmental glomerulosclerosis [Recovering/Resolving]
  - Chronic kidney disease [Recovering/Resolving]
  - Hypertension [Recovering/Resolving]
  - Nephrotic syndrome [Recovering/Resolving]
  - Drug abuse [Recovering/Resolving]
  - Overdose [Recovering/Resolving]
